FAERS Safety Report 20533227 (Version 2)
Quarter: 2022Q1

REPORT INFORMATION
  Report Type: Spontaneous
  Country: ES (occurrence: None)
  Receive Date: 20220301
  Receipt Date: 20220303
  Transmission Date: 20220423
  Serious: Yes (Death, Hospitalization, Other)
  Sender: FDA-Public Use
  Company Number: 2022A087634

PATIENT
  Age: 82 Year
  Sex: Female

DRUGS (6)
  1. QUETIAPINE [Suspect]
     Active Substance: QUETIAPINE
     Indication: Condition aggravated
     Dosage: SHE STARTED WITH 50MG/24H QUETIAPINE UNTIL REACHING 400MG/24H TWO MONTHS BEFORE REACTION
     Route: 048
  2. QUETIAPINE [Suspect]
     Active Substance: QUETIAPINE
     Indication: Dementia Alzheimer^s type
     Dosage: SHE STARTED WITH 50MG/24H QUETIAPINE UNTIL REACHING 400MG/24H TWO MONTHS BEFORE REACTION
     Route: 048
  3. QUETIAPINE [Suspect]
     Active Substance: QUETIAPINE
     Indication: Dementia
     Dosage: SHE STARTED WITH 50MG/24H QUETIAPINE UNTIL REACHING 400MG/24H TWO MONTHS BEFORE REACTION
     Route: 048
  4. TRAZODONE HYDROCHLORIDE [Concomitant]
     Active Substance: TRAZODONE HYDROCHLORIDE
     Indication: Product used for unknown indication
     Route: 065
  5. PREGABALIN [Concomitant]
     Active Substance: PREGABALIN
     Indication: Product used for unknown indication
     Route: 065
  6. LORMETAZEPAM [Concomitant]
     Active Substance: LORMETAZEPAM
     Indication: Product used for unknown indication
     Route: 065

REACTIONS (1)
  - Neuroleptic malignant syndrome [Fatal]
